FAERS Safety Report 23442978 (Version 2)
Quarter: 2025Q3

REPORT INFORMATION
  Report Type: Spontaneous
  Country: IL (occurrence: IL)
  Receive Date: 20240125
  Receipt Date: 20250804
  Transmission Date: 20251020
  Serious: Yes (Other)
  Sender: NOVARTIS
  Company Number: IL-002147023-NVSC2023IL260682

PATIENT
  Age: 24 Year
  Sex: Female

DRUGS (4)
  1. FEMARA [Suspect]
     Active Substance: LETROZOLE
     Indication: Ovarian cancer
     Dosage: 2.5 MG, QD
     Route: 048
     Dates: start: 20190101, end: 20231201
  2. CARBOPLATIN\PACLITAXEL [Suspect]
     Active Substance: CARBOPLATIN\PACLITAXEL
     Indication: Ovarian cancer
     Dosage: UNK, 21D (Q 21 DAYS)
     Route: 042
     Dates: start: 20180904, end: 20181204
  3. GOSERELIN [Suspect]
     Active Substance: GOSERELIN
     Indication: Ovarian cancer
     Route: 030
     Dates: start: 20190101, end: 20231201
  4. PACLITAXEL [Suspect]
     Active Substance: PACLITAXEL
     Indication: Product used for unknown indication
     Route: 042

REACTIONS (3)
  - Disease progression [Unknown]
  - Abdominal pain [Unknown]
  - Vulvovaginal dryness [Unknown]

NARRATIVE: CASE EVENT DATE: 20230606
